FAERS Safety Report 14196004 (Version 1)
Quarter: 2020Q3

REPORT INFORMATION
  Report Type: Report from Study
  Country: CH (occurrence: CH)
  Receive Date: 20171116
  Receipt Date: 20171116
  Transmission Date: 20201104
  Serious: Yes (Hospitalization)
  Sender: FDA-Public Use
  Company Number: CH-JNJFOC-20170414458

PATIENT
  Age: 67 Year
  Sex: Female
  Weight: 65 kg

DRUGS (5)
  1. STILNOX [Concomitant]
     Active Substance: ZOLPIDEM TARTRATE
     Indication: INSOMNIA
     Route: 048
     Dates: start: 20170316
  2. PEGYLATED LIPOSOMAL DOXORUBICIN [Suspect]
     Active Substance: DOXORUBICIN
     Route: 042
  3. TRABECTEDIN [Suspect]
     Active Substance: TRABECTEDIN
     Route: 042
  4. PEGYLATED LIPOSOMAL DOXORUBICIN [Suspect]
     Active Substance: DOXORUBICIN
     Indication: OVARIAN CANCER
     Dosage: INTENDED AND ADMINISTERED DOSE WERE 50 (UNITS NOT REPORTED).LAST CYCLE OF ADMINISTRATION 2
     Route: 042
     Dates: start: 20170220, end: 20170321
  5. TRABECTEDIN [Suspect]
     Active Substance: TRABECTEDIN
     Indication: OVARIAN CANCER
     Dosage: INTENDED AND ADMINISTERED DOSE WERE 1.87 (UNITS NOT REPORTED).LAST CYCLE OF ADMINISTRATION 2
     Route: 042
     Dates: start: 20170220, end: 20170321

REACTIONS (3)
  - Otitis media [Recovered/Resolved]
  - Febrile neutropenia [Recovered/Resolved]
  - Anaemia [Recovered/Resolved]

NARRATIVE: CASE EVENT DATE: 20170403
